FAERS Safety Report 7739287-6 (Version None)
Quarter: 2011Q3

REPORT INFORMATION
  Report Type: 
  Country: None (occurrence: None)
  Receive Date: 20110909
  Receipt Date: 20110830
  Transmission Date: 20111222
  Serious: Yes (Congenital Anomaly)
  Sender: FDA-Public Use
  Company Number: US-UCBSA-032294

PATIENT
  Sex: Female
  Weight: 3.09 kg

DRUGS (4)
  1. KEPPRA [Suspect]
     Indication: EPILEPSY
     Route: 064
  2. PRENATAL VITAMINS [Concomitant]
     Indication: PREGNANCY
     Route: 064
  3. FOLIC ACID [Concomitant]
     Indication: PREGNANCY
     Route: 064
  4. LEVOXYL [Concomitant]
     Indication: HYPOTHYROIDISM
     Route: 064

REACTIONS (6)
  - JAUNDICE [None]
  - MATERNAL EXPOSURE DURING PREGNANCY [None]
  - MITRAL VALVE INCOMPETENCE [None]
  - FEEDING DISORDER [None]
  - VENTRICULAR SEPTAL DEFECT [None]
  - TRICUSPID VALVE INCOMPETENCE [None]
